FAERS Safety Report 24249185 (Version 1)
Quarter: 2024Q3

REPORT INFORMATION
  Report Type: Spontaneous
  Country: HU (occurrence: ES)
  Receive Date: 20240826
  Receipt Date: 20240826
  Transmission Date: 20241016
  Serious: Yes (Life-Threatening, Hospitalization, Other)
  Sender: SUNOVION
  Company Number: None

PATIENT

DRUGS (3)
  1. ESTRADIOL\NORETHINDRONE ACETATE\RELUGOLIX [Suspect]
     Active Substance: ESTRADIOL\NORETHINDRONE ACETATE\RELUGOLIX
     Indication: Uterine leiomyoma
     Dosage: 1 COMPRIMIDO CADA D?A DURANTE 227 D?AS
     Route: 048
     Dates: start: 20231011, end: 20231129
  2. LAMOTRIGINE [Concomitant]
     Active Substance: LAMOTRIGINE
     Indication: Migraine
     Dosage: CRISOMET 25 MG COMPRIMIDOS MASTICABLES/DISPERSABLES
  3. FERPLEX [Concomitant]
     Indication: Product used for unknown indication
     Dosage: FERPLEX 40 MG SOLUCION ORAL
     Route: 048

REACTIONS (2)
  - Deep vein thrombosis [Recovering/Resolving]
  - Pulmonary embolism [Recovering/Resolving]

NARRATIVE: CASE EVENT DATE: 20231129
